FAERS Safety Report 24225552 (Version 1)
Quarter: 2024Q3

REPORT INFORMATION
  Report Type: Spontaneous
  Country: US (occurrence: US)
  Receive Date: 20240820
  Receipt Date: 20240820
  Transmission Date: 20241017
  Serious: No
  Sender: STRIDES
  Company Number: US-STRIDES ARCOLAB LIMITED-2024SP000035

PATIENT
  Age: 7 Decade
  Sex: Female

DRUGS (20)
  1. MEGESTROL ACETATE [Suspect]
     Active Substance: MEGESTROL ACETATE
     Indication: Endometrial adenocarcinoma
     Dosage: 80 MILLIGRAM, BID
     Route: 065
  2. MEGESTROL ACETATE [Suspect]
     Active Substance: MEGESTROL ACETATE
     Indication: Endometrial adenocarcinoma
  3. MEGESTROL ACETATE [Suspect]
     Active Substance: MEGESTROL ACETATE
     Indication: Oestrogen receptor assay positive
  4. MEGESTROL ACETATE [Suspect]
     Active Substance: MEGESTROL ACETATE
     Indication: Progesterone receptor assay positive
  5. CARBOPLATIN [Suspect]
     Active Substance: CARBOPLATIN
     Indication: Endometrial adenocarcinoma
     Dosage: UNK
     Route: 065
  6. CARBOPLATIN [Suspect]
     Active Substance: CARBOPLATIN
     Indication: Endometrial adenocarcinoma
  7. CARBOPLATIN [Suspect]
     Active Substance: CARBOPLATIN
     Indication: Progesterone receptor assay positive
  8. CARBOPLATIN [Suspect]
     Active Substance: CARBOPLATIN
     Indication: Oestrogen receptor assay positive
  9. TAMOXIFEN [Suspect]
     Active Substance: TAMOXIFEN
     Indication: Endometrial adenocarcinoma
     Dosage: 20 MILLIGRAM, BID (EVERY 3?WEEKS BASED ON HER TUMORAL ER AND PR POSITIVE STATUS AT THE TIME OF ORIGI
     Route: 065
  10. TAMOXIFEN [Suspect]
     Active Substance: TAMOXIFEN
     Indication: Endometrial adenocarcinoma
  11. TAMOXIFEN [Suspect]
     Active Substance: TAMOXIFEN
     Indication: Progesterone receptor assay positive
  12. TAMOXIFEN [Suspect]
     Active Substance: TAMOXIFEN
     Indication: Oestrogen receptor assay positive
  13. ZOLEDRONIC ACID [Concomitant]
     Active Substance: ZOLEDRONIC ACID
     Indication: Endometrial adenocarcinoma
     Dosage: 4 MILLIGRAM, EVERY 3 WEEKS
     Route: 042
  14. ZOLEDRONIC ACID [Concomitant]
     Active Substance: ZOLEDRONIC ACID
     Indication: Endometrial adenocarcinoma
  15. ZOLEDRONIC ACID [Concomitant]
     Active Substance: ZOLEDRONIC ACID
     Indication: Progesterone receptor assay positive
  16. ZOLEDRONIC ACID [Concomitant]
     Active Substance: ZOLEDRONIC ACID
     Indication: Oestrogen receptor assay positive
  17. PACLITAXEL [Concomitant]
     Active Substance: PACLITAXEL
     Indication: Endometrial adenocarcinoma
     Dosage: UNK
     Route: 065
  18. PACLITAXEL [Concomitant]
     Active Substance: PACLITAXEL
     Indication: Endometrial adenocarcinoma
  19. PACLITAXEL [Concomitant]
     Active Substance: PACLITAXEL
     Indication: Progesterone receptor assay positive
  20. PACLITAXEL [Concomitant]
     Active Substance: PACLITAXEL
     Indication: Oestrogen receptor assay positive

REACTIONS (4)
  - Nausea [Recovered/Resolved]
  - Vomiting [Recovered/Resolved]
  - Diarrhoea [Recovered/Resolved]
  - Off label use [Unknown]
